FAERS Safety Report 10775772 (Version 1)
Quarter: 2015Q1

REPORT INFORMATION
  Report Type: Spontaneous
  Country: RU (occurrence: None)
  Receive Date: 20150205
  Receipt Date: 20150205
  Transmission Date: 20150721
  Serious: Yes (Other)
  Sender: FDA-Public Use
  Company Number: 8006896

PATIENT
  Age: 30 Year
  Sex: Female
  Weight: 46 kg

DRUGS (13)
  1. LEVOTHYROXINE (LEVOTHYROXINE) (LEVOTHYROXINE SODIUM) [Suspect]
     Active Substance: LEVOTHYROXINE
     Indication: HYPOTHYROIDISM
     Dosage: 50 MCG (50 MCG, IN THE MORNING FASTING)
  2. FLUDROCORTISONE ACETATE. [Concomitant]
     Active Substance: FLUDROCORTISONE ACETATE
  3. SODIUM CHLORIDE. [Concomitant]
     Active Substance: SODIUM CHLORIDE
  4. VITAMIN C [Concomitant]
     Active Substance: ASCORBIC ACID
  5. TACHYSTIN (DIHYDROTACHYSTEROL) [Concomitant]
  6. CALCIUM [Concomitant]
     Active Substance: CALCIUM
  7. ALFACALCIDOL [Concomitant]
     Active Substance: ALFACALCIDOL
  8. CORTISONE [Concomitant]
     Active Substance: CORTISONE\HYDROCORTISONE
  9. NIZORAL [Concomitant]
     Active Substance: KETOCONAZOLE
  10. CORTEF [Concomitant]
     Active Substance: HYDROCORTISONE
  11. CALCIFEROL (ERGOCALCIFEROL) [Concomitant]
  12. PREDNISOLONE. [Concomitant]
     Active Substance: PREDNISOLONE
  13. CALCIUM CARBONATE. [Concomitant]
     Active Substance: CALCIUM CARBONATE

REACTIONS (2)
  - Maternal exposure during pregnancy [None]
  - Abortion [None]

NARRATIVE: CASE EVENT DATE: 2003
